FAERS Safety Report 11233434 (Version 1)
Quarter: 2015Q3

REPORT INFORMATION
  Report Type: Spontaneous
  Country: US (occurrence: US)
  Receive Date: 20150702
  Receipt Date: 20150702
  Transmission Date: 20151125
  Serious: No
  Sender: FDA-Public Use
  Company Number: US-009507513-1507USA000518

PATIENT
  Sex: Female
  Weight: 135.6 kg

DRUGS (1)
  1. NEXPLANON [Suspect]
     Active Substance: ETONOGESTREL
     Indication: CONTRACEPTION
     Dosage: STRENGTH 68MG, 1 IMPLANT/EVERY 3 YEARS
     Route: 059
     Dates: start: 20150512, end: 20150630

REACTIONS (2)
  - Pain in extremity [Unknown]
  - Device dislocation [Recovered/Resolved]

NARRATIVE: CASE EVENT DATE: 2015
